FAERS Safety Report 17887591 (Version 1)
Quarter: 2020Q2

REPORT INFORMATION
  Report Type: Spontaneous
  Country: US (occurrence: US)
  Receive Date: 20200612
  Receipt Date: 20200612
  Transmission Date: 20200714
  Serious: No
  Sender: FDA-Public Use
  Company Number: US-JNJFOC-20200536444

PATIENT
  Age: 74 Year
  Sex: Female

DRUGS (25)
  1. MOTRIN [Suspect]
     Active Substance: IBUPROFEN
     Indication: OSTEOARTHRITIS
     Route: 065
     Dates: start: 20200205, end: 20200210
  2. DULOXETINE. [Concomitant]
     Active Substance: DULOXETINE
     Indication: DEPRESSION
     Route: 065
     Dates: start: 20160101
  3. ULTRAM [Concomitant]
     Active Substance: TRAMADOL HYDROCHLORIDE
     Indication: OSTEOARTHRITIS
     Route: 065
     Dates: start: 20200205, end: 20200210
  4. NORMAL SALINE [Concomitant]
     Active Substance: SODIUM CHLORIDE
     Indication: OSTEOARTHRITIS
     Route: 065
     Dates: start: 20200205, end: 20200210
  5. FLEXERIL [Concomitant]
     Active Substance: CYCLOBENZAPRINE HYDROCHLORIDE
     Indication: OSTEOARTHRITIS
     Route: 065
     Dates: start: 20200205, end: 20200210
  6. COLACE [Concomitant]
     Active Substance: DOCUSATE SODIUM
     Indication: OSTEOARTHRITIS
     Route: 065
     Dates: start: 20200210, end: 20200214
  7. METOPROLOL SUCCINATE. [Concomitant]
     Active Substance: METOPROLOL SUCCINATE
     Indication: HYPERTENSION
     Route: 065
     Dates: start: 20160101
  8. BENADRYL [Concomitant]
     Active Substance: DIPHENHYDRAMINE HYDROCHLORIDE
     Indication: OSTEOARTHRITIS
     Route: 065
     Dates: start: 20200205, end: 20200210
  9. CELECOXIB. [Concomitant]
     Active Substance: CELECOXIB
     Indication: OSTEOARTHRITIS
     Route: 065
     Dates: start: 20111126, end: 20200201
  10. CHLORASEPTIC SORE THROAT [Concomitant]
     Active Substance: PHENOL
     Indication: OSTEOARTHRITIS
     Route: 065
     Dates: start: 20200205, end: 20200210
  11. SPIRONOLACTONE. [Concomitant]
     Active Substance: SPIRONOLACTONE
     Indication: HYPERTENSION
     Route: 065
     Dates: start: 20160101
  12. DILAUDID [Concomitant]
     Active Substance: HYDROMORPHONE HYDROCHLORIDE
     Indication: OSTEOARTHRITIS
     Route: 065
     Dates: start: 20200205, end: 20200210
  13. GLUCOSE [Concomitant]
     Active Substance: DEXTROSE
     Indication: OSTEOARTHRITIS
     Dosage: OCASSIONAL
     Route: 065
     Dates: start: 20200205, end: 20200210
  14. BUPROPION. [Concomitant]
     Active Substance: BUPROPION
     Indication: DEPRESSION
     Route: 065
     Dates: start: 20160101
  15. ELIQUIS [Concomitant]
     Active Substance: APIXABAN
     Indication: OSTEOARTHRITIS
     Dosage: BID
     Route: 065
     Dates: start: 20200205, end: 20200209
  16. DEXTROSE. [Concomitant]
     Active Substance: DEXTROSE
     Indication: OSTEOARTHRITIS
     Dosage: OCASSIONAL
     Route: 065
     Dates: start: 20200205, end: 20200210
  17. TYLENOL [Concomitant]
     Active Substance: ACETAMINOPHEN
     Indication: OSTEOARTHRITIS
     Route: 065
     Dates: start: 20200205, end: 20200210
  18. ZOFRAN [Concomitant]
     Active Substance: ONDANSETRON HYDROCHLORIDE
     Indication: OSTEOARTHRITIS
     Route: 065
     Dates: start: 20200205, end: 20200210
  19. GLUCAGON. [Concomitant]
     Active Substance: GLUCAGON
     Indication: OSTEOARTHRITIS
     Route: 065
     Dates: start: 20200205, end: 20200210
  20. HUMALOG [Concomitant]
     Active Substance: INSULIN LISPRO
     Indication: OSTEOARTHRITIS
     Route: 065
     Dates: start: 20200205, end: 20200210
  21. OXYCODONE [Concomitant]
     Active Substance: OXYCODONE
     Indication: OSTEOARTHRITIS
     Dosage: OTHER
     Route: 065
     Dates: start: 20200205, end: 20200210
  22. TYLENOL [Concomitant]
     Active Substance: ACETAMINOPHEN
     Route: 065
     Dates: start: 20200220
  23. AZELASTINE. [Concomitant]
     Active Substance: AZELASTINE HYDROCHLORIDE
     Indication: SEASONAL ALLERGY
     Route: 065
     Dates: start: 20170101
  24. NARCAN [Concomitant]
     Active Substance: NALOXONE HYDROCHLORIDE
     Indication: OSTEOARTHRITIS
     Dosage: OCCASIONAL
     Route: 065
     Dates: start: 20200205, end: 20200205
  25. ANCEF [Concomitant]
     Active Substance: CEFAZOLIN SODIUM
     Indication: OSTEOARTHRITIS
     Route: 065
     Dates: start: 20200205, end: 20200210

REACTIONS (1)
  - Overdose [Unknown]
